FAERS Safety Report 8552808-9 (Version None)
Quarter: 2012Q3

REPORT INFORMATION
  Report Type: 
  Country: None (occurrence: None)
  Receive Date: 20120731
  Receipt Date: 20120725
  Transmission Date: 20120928
  Serious: Yes (Other)
  Sender: FDA-Public Use
  Company Number: PHEH2012US014674

PATIENT
  Sex: Male

DRUGS (7)
  1. DIOVAN HCT [Suspect]
     Indication: HYPERTENSION
     Dosage: 0.5 DF (80/12.5 MG) DAILY
     Route: 048
     Dates: start: 20070101
  2. SIMVASTATIN [Concomitant]
     Dosage: 80 MG, UNK
  3. FOLIC ACID [Concomitant]
     Dosage: 2.5 MG, BID
  4. VITAMIN B6 [Concomitant]
     Dosage: 50 MG, UNK
  5. VITAMIN B-12 [Concomitant]
     Dosage: 2000 MG, UNK
  6. ZINC SULFATE [Concomitant]
     Dosage: UNK
  7. ASPIRIN [Concomitant]
     Dosage: 325 MG, UNK

REACTIONS (2)
  - CEREBROVASCULAR ACCIDENT [None]
  - WRONG TECHNIQUE IN DRUG USAGE PROCESS [None]
